FAERS Safety Report 12958703 (Version 1)
Quarter: 2016Q4

REPORT INFORMATION
  Report Type: Spontaneous
  Country: US (occurrence: US)
  Receive Date: 20161121
  Receipt Date: 20161121
  Transmission Date: 20170207
  Serious: Yes (Hospitalization)
  Sender: FDA-Public Use
  Company Number: US-VANDA PHARMACEUTICALS, INC-2016ILOUS001568

PATIENT
  Sex: Female

DRUGS (2)
  1. FANAPT [Suspect]
     Active Substance: ILOPERIDONE
     Indication: BIPOLAR DISORDER
     Dosage: 2 MG, UNK
     Route: 048
  2. FANAPT [Suspect]
     Active Substance: ILOPERIDONE
     Indication: OFF LABEL USE

REACTIONS (1)
  - Blood pressure decreased [Unknown]
